FAERS Safety Report 5398905-0 (Version None)
Quarter: 2007Q3

REPORT INFORMATION
  Report Type: 
  Country: None (occurrence: None)
  Receive Date: 20070727
  Receipt Date: 20070723
  Transmission Date: 20080115
  Serious: Yes (Other)
  Sender: FDA-Public Use
  Company Number: PHBS2007ES12222

PATIENT
  Age: 60 Year
  Sex: Female

DRUGS (6)
  1. VOLTAREN [Suspect]
     Dosage: 100 MG/DAY
     Route: 048
     Dates: start: 20070101
  2. ADIRO [Suspect]
     Dosage: 100 MG/DAY
     Route: 048
     Dates: end: 20070401
  3. LEVOTHYROXINE SODIUM [Concomitant]
  4. ENALAPRIL MALEATE [Concomitant]
  5. METFORMIN HCL [Concomitant]
  6. SIMVASTATIN [Concomitant]

REACTIONS (2)
  - DRUG INTERACTION [None]
  - EYE HAEMORRHAGE [None]
